FAERS Safety Report 22052916 (Version 2)
Quarter: 2023Q2

REPORT INFORMATION
  Report Type: Other
  Country: US (occurrence: None)
  Receive Date: 20230302
  Receipt Date: 20230426
  Transmission Date: 20230721
  Serious: No
  Sender: FDA-Public Use
  Company Number: US-ROCHE-3296085

PATIENT
  Age: 35 Year
  Sex: Female
  Weight: 127.12 kg

DRUGS (16)
  1. OCREVUS [Suspect]
     Active Substance: OCRELIZUMAB
     Indication: Multiple sclerosis
     Route: 042
     Dates: start: 2019
  2. OCREVUS [Suspect]
     Active Substance: OCRELIZUMAB
     Route: 042
  3. ACETYLCARNITINE [Concomitant]
     Active Substance: ACETYLCARNITINE
  4. VENTOLIN HFA [Concomitant]
     Active Substance: ALBUTEROL SULFATE
  5. ZEBETA [Concomitant]
     Active Substance: BISOPROLOL FUMARATE
  6. VITAMIN D3 [Concomitant]
     Active Substance: CHOLECALCIFEROL
  7. VITAMIN B12 [Concomitant]
     Active Substance: CYANOCOBALAMIN
  8. ADDERALL [Concomitant]
     Active Substance: AMPHETAMINE ASPARTATE\AMPHETAMINE SULFATE\DEXTROAMPHETAMINE SACCHARATE\DEXTROAMPHETAMINE SULFATE
  9. TRULICITY [Concomitant]
     Active Substance: DULAGLUTIDE
  10. EPIPEN [Concomitant]
     Active Substance: EPINEPHRINE
  11. PEPCID [Concomitant]
     Active Substance: FAMOTIDINE
  12. FOLVITE [Concomitant]
     Active Substance: FOLIC ACID
  13. GLUCAGEN [Concomitant]
     Active Substance: GLUCAGON HYDROCHLORIDE
  14. XYZAL [Concomitant]
     Active Substance: LEVOCETIRIZINE DIHYDROCHLORIDE
  15. ROBAXIN [Concomitant]
     Active Substance: METHOCARBAMOL
  16. VITAMIN B1 [Concomitant]
     Active Substance: THIAMINE HYDROCHLORIDE

REACTIONS (5)
  - COVID-19 [Not Recovered/Not Resolved]
  - Fall [Unknown]
  - Infection [Recovered/Resolved]
  - Memory impairment [Not Recovered/Not Resolved]
  - Off label use [Unknown]

NARRATIVE: CASE EVENT DATE: 20220101
